FAERS Safety Report 22380058 (Version 1)
Quarter: 2023Q2

REPORT INFORMATION
  Report Type: Spontaneous
  Country: NO (occurrence: NO)
  Receive Date: 20230529
  Receipt Date: 20230529
  Transmission Date: 20230721
  Serious: Yes (Other)
  Sender: FDA-Public Use
  Company Number: None

PATIENT
  Age: 35 Year
  Sex: Female
  Weight: 90 kg

DRUGS (3)
  1. ELIQUIS [Suspect]
     Active Substance: APIXABAN
     Indication: Thrombosis prophylaxis
     Dosage: 5MG TWICE DAILY.
     Dates: start: 202108
  2. ELIQUIS [Suspect]
     Active Substance: APIXABAN
     Dosage: THE DOSAGE REDUCED TO 2.5MG TWICE DAILY DUE TO THE ADRS
  3. AMOXICILLIN [Suspect]
     Active Substance: AMOXICILLIN
     Indication: Sinusitis
     Dosage: 500MG 3 TIMES DAILY
     Route: 048
     Dates: start: 20220601, end: 20220611

REACTIONS (7)
  - Mucous stools [Unknown]
  - Diarrhoea [Unknown]
  - Abdominal discomfort [Unknown]
  - Gastritis [Recovered/Resolved with Sequelae]
  - Diarrhoea haemorrhagic [Unknown]
  - Abdominal pain [Unknown]
  - Haematochezia [Recovered/Resolved with Sequelae]

NARRATIVE: CASE EVENT DATE: 20220601
